FAERS Safety Report 10723946 (Version 5)
Quarter: 2015Q4

REPORT INFORMATION
  Report Type: Report from Study
  Country: AR (occurrence: AR)
  Receive Date: 20150120
  Receipt Date: 20151012
  Transmission Date: 20160304
  Serious: Yes (Hospitalization)
  Sender: FDA-Public Use
  Company Number: PHHY2015AR002676

PATIENT
  Age: 69 Year
  Sex: Male

DRUGS (5)
  1. CLOZARIL [Suspect]
     Active Substance: CLOZAPINE
     Indication: CATATONIA
     Dosage: 500 MG, UNK
     Route: 048
  2. BISOPROLOL [Concomitant]
     Active Substance: BISOPROLOL
     Indication: PRODUCT USED FOR UNKNOWN INDICATION
     Dosage: UNK
     Route: 065
     Dates: start: 201012
  3. ASPIRIN. [Concomitant]
     Active Substance: ASPIRIN
     Indication: PRODUCT USED FOR UNKNOWN INDICATION
     Dosage: UNK
     Route: 065
  4. MEMANTINE. [Concomitant]
     Active Substance: MEMANTINE
     Indication: PRODUCT USED FOR UNKNOWN INDICATION
     Dosage: UNK
     Route: 065
  5. QUETIAPINE [Concomitant]
     Active Substance: QUETIAPINE
     Indication: PRODUCT USED FOR UNKNOWN INDICATION
     Dosage: UNK
     Route: 065

REACTIONS (10)
  - White blood cell count increased [Recovered/Resolved]
  - Catatonia [Unknown]
  - White blood cell count increased [Unknown]
  - Off label use [Unknown]
  - Lymphocyte percentage decreased [Unknown]
  - Aspiration [Recovered/Resolved]
  - Neutrophil percentage increased [Unknown]
  - Blood glucose increased [Unknown]
  - Anaemia [Unknown]
  - Blood urea increased [Unknown]

NARRATIVE: CASE EVENT DATE: 201410
